FAERS Safety Report 10953638 (Version 2)
Quarter: 2015Q2

REPORT INFORMATION
  Report Type: Spontaneous
  Country: BE (occurrence: BE)
  Receive Date: 20150325
  Receipt Date: 20150604
  Transmission Date: 20150821
  Serious: Yes (Other)
  Sender: FDA-Public Use
  Company Number: BE-ELI_LILLY_AND_COMPANY-BE201503005678

PATIENT
  Age: 80 Year
  Sex: Female

DRUGS (3)
  1. ZYPREXA [Suspect]
     Active Substance: OLANZAPINE
     Indication: AGGRESSION
     Dosage: 10 MG, QD
     Route: 048
  2. MIRTAZAPINE. [Suspect]
     Active Substance: MIRTAZAPINE
     Indication: PRODUCT USED FOR UNKNOWN INDICATION
     Dosage: 30 MG, EACH EVENING
  3. ZYPREXA [Suspect]
     Active Substance: OLANZAPINE
     Dosage: 7.5 MG, QD
     Route: 048
     Dates: start: 20150410

REACTIONS (6)
  - Peripheral swelling [Not Recovered/Not Resolved]
  - Cellulitis [Not Recovered/Not Resolved]
  - Finger deformity [Not Recovered/Not Resolved]
  - Muscle spasticity [Not Recovered/Not Resolved]
  - Off label use [Not Recovered/Not Resolved]
  - Skin warm [Not Recovered/Not Resolved]
